FAERS Safety Report 7784307-6 (Version None)
Quarter: 2011Q3

REPORT INFORMATION
  Report Type: 
  Country: None (occurrence: None)
  Receive Date: 20110928
  Receipt Date: 20110919
  Transmission Date: 20111222
  Serious: Yes (Other)
  Sender: FDA-Public Use
  Company Number: PHEH2011US04637

PATIENT
  Sex: Female
  Weight: 85 kg

DRUGS (4)
  1. NEUPOGEN [Concomitant]
  2. ARANESP [Concomitant]
  3. EXJADE [Suspect]
     Indication: MYELODYSPLASTIC SYNDROME
     Dosage: 1500 MG, DAILY
     Dates: start: 20110728, end: 20110830
  4. EXJADE [Suspect]
     Indication: IRON OVERLOAD
     Dosage: 1500 MG, DAILY
     Route: 048
     Dates: start: 20110505, end: 20110525

REACTIONS (7)
  - LIVER DISORDER [None]
  - ALANINE AMINOTRANSFERASE INCREASED [None]
  - RASH PRURITIC [None]
  - ASPARTATE AMINOTRANSFERASE INCREASED [None]
  - INFLAMMATION [None]
  - HEPATIC FIBROSIS [None]
  - HAEMOSIDEROSIS [None]
